FAERS Safety Report 16508972 (Version 1)
Quarter: 2019Q3

REPORT INFORMATION
  Report Type: Spontaneous
  Country: US (occurrence: US)
  Receive Date: 20190521
  Receipt Date: 20190521
  Transmission Date: 20191004
  Serious: Yes (Hospitalization)
  Sender: FDA-Public Use
  Company Number: None

PATIENT
  Sex: Female

DRUGS (6)
  1. DALFAMPRIDINE. [Suspect]
     Active Substance: DALFAMPRIDINE
     Indication: MULTIPLE SCLEROSIS
     Route: 048
     Dates: start: 20181026
  2. KEFLEX [Concomitant]
     Active Substance: CEPHALEXIN
  3. TOPOMANX [Concomitant]
  4. LISINOPRIL. [Concomitant]
     Active Substance: LISINOPRIL
  5. REBIF [Suspect]
     Active Substance: INTERFERON BETA-1A
     Indication: MULTIPLE SCLEROSIS
     Dosage: 44MCG 3XWEEK MWF; SUBCUTANEOUS INJECTION?
     Route: 058
     Dates: start: 20130530
  6. DOXYCYCL HYC [Concomitant]

REACTIONS (1)
  - Hospitalisation [None]
